FAERS Safety Report 19969595 (Version 1)
Quarter: 2021Q4

REPORT INFORMATION
  Report Type: Spontaneous
  Country: GB (occurrence: GB)
  Receive Date: 20211019
  Receipt Date: 20211019
  Transmission Date: 20220304
  Serious: Yes (Other)
  Sender: FDA-Public Use
  Company Number: GB-ABBVIE-21K-167-4119221-00

PATIENT

DRUGS (2)
  1. EPILIM [Suspect]
     Active Substance: VALPROATE SODIUM
     Indication: Product used for unknown indication
     Route: 065
  2. EPILIM [Suspect]
     Active Substance: VALPROATE SODIUM
     Route: 065

REACTIONS (2)
  - Neoplasm malignant [Unknown]
  - Product supply issue [Unknown]
